FAERS Safety Report 22625801 (Version 1)
Quarter: 2023Q2

REPORT INFORMATION
  Report Type: Spontaneous
  Country: US (occurrence: US)
  Receive Date: 20230621
  Receipt Date: 20230621
  Transmission Date: 20230722
  Serious: Yes (Hospitalization)
  Sender: FDA-Public Use
  Company Number: US-ELI_LILLY_AND_COMPANY-US202306009983

PATIENT
  Age: 69 Year
  Sex: Female

DRUGS (2)
  1. ZYPREXA [Suspect]
     Active Substance: OLANZAPINE
     Indication: Product used for unknown indication
     Dosage: UNK UNK, UNKNOWN
     Route: 065
  2. INGREZZA [Suspect]
     Active Substance: VALBENAZINE
     Indication: Tardive dyskinesia
     Dosage: 40 MG, DAILY
     Route: 065
     Dates: start: 20230206

REACTIONS (2)
  - Psychiatric symptom [Unknown]
  - Drooling [Unknown]
